FAERS Safety Report 15710236 (Version 2)
Quarter: 2019Q1

REPORT INFORMATION
  Report Type: Spontaneous
  Country: ES (occurrence: ES)
  Receive Date: 20181211
  Receipt Date: 20190108
  Transmission Date: 20190417
  Serious: Yes (Other)
  Sender: FDA-Public Use
  Company Number: ES-BRACCO-2018ES06314

PATIENT
  Age: 4 Year
  Sex: Female

DRUGS (1)
  1. SONOVUE [Suspect]
     Active Substance: SULFUR HEXAFLUORIDE
     Indication: ULTRASOUND KIDNEY
     Dosage: 2.4 ML, SINGLE
     Route: 040
     Dates: start: 20181128, end: 20181128

REACTIONS (6)
  - Livedo reticularis [Recovered/Resolved]
  - Rash [Recovered/Resolved]
  - Cough [Recovered/Resolved]
  - Vomiting [Recovered/Resolved]
  - Off label use [Recovered/Resolved]
  - Dyspnoea [Recovered/Resolved]

NARRATIVE: CASE EVENT DATE: 20181128
